FAERS Safety Report 8937052 (Version 1)
Quarter: 2012Q4

REPORT INFORMATION
  Report Type: 
  Country: US (occurrence: US)
  Receive Date: 20121130
  Receipt Date: 20121130
  Transmission Date: 20130627
  Serious: No
  Sender: FDA-Public Use
  Company Number: US-B.I. PHARMACEUTICALS,INC./RIDGEFIELD-2012-BI-00201BP

PATIENT
  Age: 56 Year
  Sex: Female
  Weight: 100 kg

DRUGS (2)
  1. COMBIVENT [Suspect]
     Indication: ASTHMA
     Route: 055
     Dates: start: 20121027, end: 20121031
  2. COMBIVENT [Suspect]
     Indication: ASTHMA
     Route: 055
     Dates: start: 20121101

REACTIONS (2)
  - Pruritus [Recovered/Resolved]
  - Skin disorder [Recovered/Resolved]
